FAERS Safety Report 18300333 (Version 1)
Quarter: 2020Q3

REPORT INFORMATION
  Report Type: Spontaneous
  Country: US (occurrence: US)
  Receive Date: 20200922
  Receipt Date: 20200922
  Transmission Date: 20201103
  Serious: No
  Sender: FDA-Public Use
  Company Number: None

PATIENT
  Age: 45 Year
  Sex: Female
  Weight: 67.28 kg

DRUGS (8)
  1. SELENIUM [Concomitant]
     Active Substance: SELENIUM
  2. VITAMIN C [Concomitant]
     Active Substance: ASCORBIC ACID
  3. CLINDAMYCIN 150 MG CAPSULES NDC#00713317101 [Suspect]
     Active Substance: CLINDAMYCIN HYDROCHLORIDE
     Indication: OSTEITIS
     Dosage: ?          QUANTITY:2 CAPSULE(S);?
     Route: 048
     Dates: start: 20200919
  4. VITAMIN D [Concomitant]
     Active Substance: VITAMIN D NOS
  5. TURKEY TAIL [Concomitant]
  6. PROBIOTICS [Concomitant]
     Active Substance: PROBIOTICS NOS
  7. ELDERBERRY [Concomitant]
     Active Substance: HERBALS
  8. VITAMIN B COMPLEX [Concomitant]
     Active Substance: CYANOCOBALAMIN\DEXPANTHENOL\NIACINAMIDE\PYRIDOXINE HYDROCHLORIDE\RIBOFLAVIN 5^-PHOSPHATE SODIUM\THIAMINE HYDROCHLORIDE\VITAMIN B COMPLEX

REACTIONS (10)
  - Pruritus [None]
  - Oral pain [None]
  - Dyspepsia [None]
  - Headache [None]
  - Fatigue [None]
  - Constipation [None]
  - Feeling abnormal [None]
  - Rash erythematous [None]
  - Abdominal distension [None]
  - Fluid retention [None]
